FAERS Safety Report 21301381 (Version 2)
Quarter: 2022Q3

REPORT INFORMATION
  Report Type: Spontaneous
  Country: US (occurrence: None)
  Receive Date: 20220907
  Receipt Date: 20220923
  Transmission Date: 20221027
  Serious: Yes (Disabling)
  Sender: FDA-Public Use
  Company Number: 2022A303795

PATIENT
  Age: 26492 Day
  Sex: Male

DRUGS (1)
  1. FASENRA [Suspect]
     Active Substance: BENRALIZUMAB
     Indication: Asthma
     Route: 058

REACTIONS (4)
  - Blindness [Unknown]
  - Hypoacusis [Unknown]
  - Device delivery system issue [Unknown]
  - Device use issue [Unknown]

NARRATIVE: CASE EVENT DATE: 20220829
